FAERS Safety Report 4362391-X (Version None)
Quarter: 2004Q2

REPORT INFORMATION
  Report Type: 
  Country: None (occurrence: None)
  Receive Date: 20040518
  Receipt Date: 20040507
  Transmission Date: 20050107
  Serious: Yes (Other)
  Sender: FDA-Public Use
  Company Number: 2004031257

PATIENT
  Age: 28 Year
  Sex: Female
  Weight: 79.3795 kg

DRUGS (2)
  1. ZITHROMAX [Suspect]
     Indication: SINUSITIS
     Dosage: 1 IN 1 D, ORAL
     Route: 048
     Dates: start: 20040504
  2. ZYRTEC-D 12 HOUR [Suspect]
     Indication: SINUSITIS
     Dosage: 2 IN 1 D
     Dates: start: 20040505

REACTIONS (3)
  - DRUG INEFFECTIVE [None]
  - EYELID FUNCTION DISORDER [None]
  - HYPOAESTHESIA [None]
